FAERS Safety Report 9746590 (Version 1)
Quarter: 2013Q4

REPORT INFORMATION
  Report Type: Report from Study
  Country: BR (occurrence: BR)
  Receive Date: 20131211
  Receipt Date: 20131211
  Transmission Date: 20140711
  Serious: Yes (Other)
  Sender: FDA-Public Use
  Company Number: BR-BAYER-2013-148221

PATIENT
  Age: 32 Year
  Sex: Male

DRUGS (3)
  1. BETAFERON [Suspect]
     Indication: MULTIPLE SCLEROSIS
     Dosage: 1 ML, QOD
     Route: 058
     Dates: start: 201307
  2. TYLEX [PARACETAMOL] [Concomitant]
     Indication: PAIN
     Dosage: 1 DF, QD
     Route: 048
     Dates: start: 2013
  3. VALIUM [Concomitant]
     Indication: MUSCLE SPASMS
     Dosage: 10 MG, QD
     Route: 048
     Dates: start: 201310

REACTIONS (17)
  - Nausea [Recovering/Resolving]
  - Myalgia [Recovering/Resolving]
  - Muscle spasms [Recovering/Resolving]
  - Pneumonia [Recovered/Resolved]
  - Wheezing [None]
  - Dyspnoea [None]
  - Infected bites [Recovered/Resolved]
  - Feeling abnormal [Not Recovered/Not Resolved]
  - Pain in extremity [Recovering/Resolving]
  - Pyrexia [Recovering/Resolving]
  - Vomiting [Not Recovered/Not Resolved]
  - Chest pain [Not Recovered/Not Resolved]
  - Abdominal pain upper [Recovering/Resolving]
  - Headache [Recovering/Resolving]
  - Bipolar disorder [Recovering/Resolving]
  - Mania [Recovering/Resolving]
  - Pneumonia [None]
